FAERS Safety Report 19674380 (Version 1)
Quarter: 2021Q3

REPORT INFORMATION
  Report Type: Spontaneous
  Country: US (occurrence: US)
  Receive Date: 20210809
  Receipt Date: 20210809
  Transmission Date: 20211014
  Serious: Yes (Death)
  Sender: FDA-Public Use
  Company Number: None

PATIENT
  Age: 41 Year
  Sex: Female
  Weight: 98.2 kg

DRUGS (17)
  1. PROTONIX 40MG ONCE DAILY [Concomitant]
     Dates: start: 20200221, end: 20210717
  2. MS CONTIN 30MG XR EVERY 12 HOURS [Concomitant]
     Dates: start: 20181112, end: 20210717
  3. MIRALAX 17G ONCE DAILY [Concomitant]
     Dates: start: 20200416, end: 20210717
  4. ZYRTEC 10MG ONCE DAILY [Concomitant]
     Dates: start: 20170424, end: 20210717
  5. VITAMIN D3 2,000 IU ONCE DAILY [Concomitant]
     Dates: start: 20201113, end: 20210717
  6. FOLIC ACID 1MG ONCE DAILY [Concomitant]
     Dates: start: 20140319, end: 20210717
  7. DEPO?PROVERA 150MG IM EVERY 3 MONTHS [Concomitant]
     Dates: start: 20160607, end: 20210717
  8. OXBRYTA 1500MG ONCE DAILY [Concomitant]
     Dates: start: 20210205, end: 20210717
  9. REGLAN 5MG ONCE DAILY [Concomitant]
     Dates: start: 20200721, end: 20210717
  10. MORPHINE SULPHATE 30MG EVERY 4 HOURS PRN PAIN [Concomitant]
     Dates: start: 20160404, end: 20210717
  11. LYRICA 400MG THREE TIMES DAILY [Concomitant]
     Dates: start: 20141119, end: 20210717
  12. ONDANSETRON 8MG PRN NAUSEA [Concomitant]
     Dates: start: 20201113, end: 20210717
  13. CARBAMAZEPINE 400MG ONCE DAILY [Concomitant]
     Dates: start: 20180319, end: 20210717
  14. HYDREA 2000 MG ONCE DAILY [Concomitant]
     Dates: start: 20170405, end: 20210717
  15. ADAKVEO [Suspect]
     Active Substance: CRIZANLIZUMAB-TMCA
     Indication: SICKLE CELL DISEASE
     Dosage: ?          OTHER FREQUENCY:ONCE;?
     Route: 041
     Dates: start: 20210510, end: 20210717
  16. NARCAN 4MG/0.1ML PRN OPIOID OVERDOSE [Concomitant]
     Dates: start: 20200406, end: 20210717
  17. DULOXETINE 20MG TWICE DAILY [Concomitant]
     Dates: start: 20190531, end: 20210717

REACTIONS (3)
  - Pain [None]
  - Pulse absent [None]
  - Sickle cell anaemia with crisis [None]

NARRATIVE: CASE EVENT DATE: 20210717
